FAERS Safety Report 9434963 (Version 1)
Quarter: 2013Q3

REPORT INFORMATION
  Report Type: Spontaneous
  Country: ES (occurrence: ES)
  Receive Date: 20130801
  Receipt Date: 20130801
  Transmission Date: 20140515
  Serious: Yes (Death, Life-Threatening, Other)
  Sender: FDA-Public Use
  Company Number: ES-PFIZER INC-2013220281

PATIENT
  Age: 19 Year
  Sex: Female

DRUGS (1)
  1. TETRACYCLINE HCL [Suspect]
     Indication: ACNE
     Dosage: UNK

REACTIONS (2)
  - Myocarditis [Fatal]
  - Hypersensitivity [Unknown]
